FAERS Safety Report 7389929-2 (Version None)
Quarter: 2011Q2

REPORT INFORMATION
  Report Type: 
  Country: None (occurrence: None)
  Receive Date: 20110401
  Receipt Date: 20110318
  Transmission Date: 20111010
  Serious: Yes (Hospitalization, Other)
  Sender: FDA-Public Use
  Company Number: CA-BAYER-2011-024724

PATIENT
  Age: 54 Year
  Sex: Female

DRUGS (5)
  1. ASPIRIN [Suspect]
     Route: 065
  2. SILDENAFIL [Suspect]
     Dosage: DAILY DOSE 3 DF
     Route: 065
  3. REMODULIN [Suspect]
     Dosage: UNK
     Route: 048
  4. DIGOXIN [Suspect]
     Route: 065
  5. TRACLEER [Suspect]
     Route: 065

REACTIONS (5)
  - RENAL FAILURE [None]
  - OEDEMA [None]
  - PHOTOPHOBIA [None]
  - BLINDNESS [None]
  - DELIRIUM [None]
